FAERS Safety Report 8307048 (Version 4)
Quarter: 2015Q2

REPORT INFORMATION
  Report Type: Spontaneous
  Country: US (occurrence: US)
  Receive Date: 20111222
  Receipt Date: 20150505
  Transmission Date: 20150821
  Serious: No
  Sender: FDA-Public Use
  Company Number: US-GLAXOSMITHKLINE-A0891408A

PATIENT
  Age: 63 Year
  Sex: Female

DRUGS (7)
  1. FLUTICASONE PROPIONATE NASAL SPRAY [Suspect]
     Active Substance: FLUTICASONE PROPIONATE
     Indication: MULTIPLE ALLERGIES
     Dosage: 2 DF, QD
     Route: 045
  2. FLONASE [Suspect]
     Active Substance: FLUTICASONE PROPIONATE
     Dosage: 2 DF, QD
     Route: 045
  3. CLONIDINE. [Concomitant]
     Active Substance: CLONIDINE
  4. FLONASE [Suspect]
     Active Substance: FLUTICASONE PROPIONATE
     Indication: MULTIPLE ALLERGIES
     Dosage: 2 UNK, 1D
     Route: 045
     Dates: start: 1997, end: 201010
  5. CARTIA XT [Concomitant]
     Active Substance: DILTIAZEM HYDROCHLORIDE
  6. LISINOPRIL. [Concomitant]
     Active Substance: LISINOPRIL
  7. VITAMIN D [Concomitant]
     Active Substance: CHOLECALCIFEROL

REACTIONS (13)
  - Non-cardiac chest pain [Recovering/Resolving]
  - Nasal inflammation [Unknown]
  - Throat irritation [Unknown]
  - Pruritus [Recovering/Resolving]
  - Drug ineffective [Recovering/Resolving]
  - Ear pain [Unknown]
  - Oropharyngeal pain [Unknown]
  - Product quality issue [Unknown]
  - Lymph node pain [Unknown]
  - Insomnia [Unknown]
  - Sinus congestion [Recovering/Resolving]
  - Condition aggravated [Unknown]
  - Ear discomfort [Unknown]

NARRATIVE: CASE EVENT DATE: 201010
